FAERS Safety Report 5661334-6 (Version None)
Quarter: 2008Q1

REPORT INFORMATION
  Report Type: 
  Country: None (occurrence: None)
  Receive Date: 20080312
  Receipt Date: 20080304
  Transmission Date: 20080703
  Serious: Yes (Other)
  Sender: FDA-Public Use
  Company Number: US-ASTRAZENECA-2007UW23153

PATIENT
  Age: 65 Year
  Sex: Female

DRUGS (9)
  1. NEXIUM [Suspect]
     Indication: GASTROOESOPHAGEAL REFLUX DISEASE
     Route: 048
  2. NEXIUM [Suspect]
     Indication: REGURGITATION
     Route: 048
  3. NEXIUM [Suspect]
     Route: 048
     Dates: start: 20080201
  4. NEXIUM [Suspect]
     Route: 048
     Dates: start: 20080201
  5. LIPITOR [Concomitant]
  6. AMBIEN [Concomitant]
  7. DIOVAN [Concomitant]
  8. METOPROLOL TARTRATE [Concomitant]
     Route: 048
  9. WARFARIN SODIUM [Concomitant]

REACTIONS (4)
  - ATRIAL FIBRILLATION [None]
  - HEART RATE INCREASED [None]
  - PHARYNGEAL OEDEMA [None]
  - REGURGITATION [None]
